FAERS Safety Report 6998300-4 (Version None)
Quarter: 2010Q3

REPORT INFORMATION
  Report Type: 
  Country: None (occurrence: None)
  Receive Date: 20100920
  Receipt Date: 20091111
  Transmission Date: 20110219
  Serious: Yes (Hospitalization)
  Sender: FDA-Public Use
  Company Number: US-ASTRAZENECA-2009SE25907

PATIENT
  Age: 90 Year
  Sex: Female

DRUGS (7)
  1. SEROQUEL [Suspect]
     Indication: AGITATION
     Route: 048
     Dates: start: 20090901, end: 20091015
  2. NAMENDA [Concomitant]
     Route: 048
  3. ARICEPT [Concomitant]
     Route: 048
  4. ATENOLOL [Concomitant]
     Route: 048
  5. TRAMADOL [Concomitant]
     Route: 048
  6. MULTI-VITAMIN [Concomitant]
  7. FOLIC [Concomitant]

REACTIONS (3)
  - BLOOD PRESSURE DECREASED [None]
  - SOMNOLENCE [None]
  - SYNCOPE [None]
